FAERS Safety Report 24639559 (Version 1)
Quarter: 2024Q4

REPORT INFORMATION
  Report Type: Spontaneous
  Country: US (occurrence: US)
  Receive Date: 20241119
  Receipt Date: 20241119
  Transmission Date: 20250115
  Serious: No
  Sender: ALVOGEN
  Company Number: US-ALVOGEN-2024092949

PATIENT
  Sex: Female

DRUGS (1)
  1. TERIPARATIDE [Suspect]
     Active Substance: TERIPARATIDE
     Indication: Osteoporosis
     Dosage: 20MCG?250 MCG/ML
     Route: 058
     Dates: start: 202310

REACTIONS (5)
  - Pollakiuria [Unknown]
  - Epigastric discomfort [Unknown]
  - Dehydration [Unknown]
  - Cystitis interstitial [Unknown]
  - Muscle spasms [Unknown]
